FAERS Safety Report 9185172 (Version 1)
Quarter: 2013Q1

REPORT INFORMATION
  Report Type: Spontaneous
  Country: FR (occurrence: FR)
  Receive Date: 20130325
  Receipt Date: 20130325
  Transmission Date: 20140127
  Serious: Yes (Death)
  Sender: FDA-Public Use
  Company Number: FR-ABBOTT-13X-056-1067191-00

PATIENT
  Age: 81 Year
  Sex: Female

DRUGS (5)
  1. DEPAKINE [Suspect]
     Indication: PRODUCT USED FOR UNKNOWN INDICATION
     Route: 048
     Dates: end: 20130114
  2. KARDEGIC [Interacting]
     Indication: PRODUCT USED FOR UNKNOWN INDICATION
     Route: 048
     Dates: end: 20130114
  3. LOVENOX [Interacting]
     Indication: PULMONARY EMBOLISM
     Dosage: 60 MILLIGRAM(S) ;TWICE A DAY
     Route: 058
     Dates: start: 20130107, end: 20130114
  4. PREVISCAN [Interacting]
     Indication: PULMONARY EMBOLISM
     Dosage: 20 MILLIGRAM(S) ;DAILY
     Route: 048
     Dates: start: 20130111, end: 20130114
  5. AUGMENTIN [Concomitant]
     Indication: PRODUCT USED FOR UNKNOWN INDICATION
     Dates: start: 20130107

REACTIONS (4)
  - Muscle haemorrhage [Fatal]
  - Drug interaction [Fatal]
  - Hypotension [Fatal]
  - Haemoglobin decreased [Fatal]
